FAERS Safety Report 10024658 (Version 1)
Quarter: 2014Q1

REPORT INFORMATION
  Report Type: Spontaneous
  Country: US (occurrence: None)
  Receive Date: 20140319
  Receipt Date: 20140319
  Transmission Date: 20141002
  Serious: Yes (Hospitalization)
  Sender: FDA-Public Use
  Company Number: None

PATIENT
  Age: 62 Year
  Sex: Male

DRUGS (2)
  1. CARFILZOMIB [Suspect]
     Indication: PLASMA CELL MYELOMA
     Dates: start: 20130901
  2. REVLIMID [Suspect]
     Indication: PLASMA CELL MYELOMA

REACTIONS (4)
  - Diarrhoea [None]
  - Abscess [None]
  - Impaired healing [None]
  - Diverticulum [None]
